FAERS Safety Report 12425999 (Version 1)
Quarter: 2016Q2

REPORT INFORMATION
  Report Type: Spontaneous
  Country: US (occurrence: US)
  Receive Date: 20160601
  Receipt Date: 20160601
  Transmission Date: 20160815
  Serious: Yes (Death, Other)
  Sender: FDA-Public Use
  Company Number: US-CELGENEUS-USA-2016056623

PATIENT

DRUGS (5)
  1. EVOFOSFAMIDE [Suspect]
     Active Substance: EVOFOSFAMIDE
     Route: 065
  2. EVOFOSFAMIDE [Suspect]
     Active Substance: EVOFOSFAMIDE
     Indication: PANCREATIC CARCINOMA METASTATIC
     Route: 065
  3. EVOFOSFAMIDE [Suspect]
     Active Substance: EVOFOSFAMIDE
     Route: 065
  4. GEMCITABINE [Suspect]
     Active Substance: GEMCITABINE\GEMCITABINE HYDROCHLORIDE
     Indication: PANCREATIC CARCINOMA METASTATIC
     Route: 065
  5. ABRAXANE [Suspect]
     Active Substance: PACLITAXEL
     Indication: PANCREATIC CARCINOMA METASTATIC
     Route: 065

REACTIONS (13)
  - Lung infiltration [Unknown]
  - Pneumonia [Unknown]
  - Hypotension [Unknown]
  - Thrombocytopenia [Unknown]
  - Sepsis [Fatal]
  - Acute kidney injury [Unknown]
  - Febrile neutropenia [Unknown]
  - Neutropenia [Unknown]
  - Alopecia [Unknown]
  - Pancytopenia [Unknown]
  - Rash erythematous [Unknown]
  - Anaemia [Unknown]
  - Fatigue [Unknown]
